FAERS Safety Report 22201987 (Version 1)
Quarter: 2023Q2

REPORT INFORMATION
  Report Type: Spontaneous
  Country: JP (occurrence: JP)
  Receive Date: 20230412
  Receipt Date: 20230412
  Transmission Date: 20230721
  Serious: Yes (Other)
  Sender: FDA-Public Use
  Company Number: JP-PFIZER INC-PV202300061976

PATIENT
  Age: 8 Decade
  Sex: Female

DRUGS (16)
  1. RISPERIDONE [Suspect]
     Active Substance: RISPERIDONE
     Dosage: 9 MG, DAILY
  2. LORAZEPAM [Suspect]
     Active Substance: LORAZEPAM
     Dosage: 1 MG, DAILY
  3. PEROSPIRONE [Suspect]
     Active Substance: PEROSPIRONE
     Dosage: 24 MG, MAXIMUM DAILY DOSE
  4. PEROSPIRONE [Suspect]
     Active Substance: PEROSPIRONE
     Dosage: 48 MG, DAILY
  5. PEROSPIRONE [Suspect]
     Active Substance: PEROSPIRONE
     Dosage: 16 MG, DAILY
  6. PEROSPIRONE [Suspect]
     Active Substance: PEROSPIRONE
     Dosage: 8 MG, DAILY
  7. OLANZAPINE [Suspect]
     Active Substance: OLANZAPINE
     Dosage: 20 MG, DAILY
  8. QUETIAPINE [Suspect]
     Active Substance: QUETIAPINE
     Dosage: 200 MG, DAILY
  9. HALOPERIDOL [Suspect]
     Active Substance: HALOPERIDOL
     Dosage: 25 MG, DAILY
  10. CHLORPROMAZINE [Suspect]
     Active Substance: CHLORPROMAZINE
     Dosage: 150 MG, DAILY
  11. BIPERIDEN [Suspect]
     Active Substance: BIPERIDEN
     Dosage: 3 MG, DAILY
  12. PROMETHAZINE [Suspect]
     Active Substance: PROMETHAZINE HYDROCHLORIDE
     Dosage: 70 MG, DAILY
  13. BREXPIPRAZOLE [Suspect]
     Active Substance: BREXPIPRAZOLE
     Dosage: 2 MG, DAILY
  14. LEVOMEPROMAZINE [Suspect]
     Active Substance: LEVOMEPROMAZINE
     Dosage: 5 MG, DAILY
  15. FLUNITRAZEPAM [Suspect]
     Active Substance: FLUNITRAZEPAM
     Dosage: 4 MG, DAILY
  16. NITRAZEPAM [Suspect]
     Active Substance: NITRAZEPAM
     Dosage: 20 MG, DAILY

REACTIONS (2)
  - Tardive dyskinesia [Recovered/Resolved]
  - Dystonia [Recovering/Resolving]
